FAERS Safety Report 9474016 (Version 1)
Quarter: 2013Q3

REPORT INFORMATION
  Report Type: Spontaneous
  Country: US (occurrence: None)
  Receive Date: 20130820
  Receipt Date: 20130820
  Transmission Date: 20140515
  Serious: Yes (Other)
  Sender: FDA-Public Use
  Company Number: JPI-P-034541

PATIENT
  Age: 28 Year
  Sex: Male

DRUGS (1)
  1. XYREM [Suspect]
     Dosage: 2.25 GM 2 IN 1 D
     Route: 048
     Dates: start: 20130719, end: 2013

REACTIONS (4)
  - Bipolar disorder [None]
  - Condition aggravated [None]
  - Insomnia [None]
  - Somnolence [None]
